FAERS Safety Report 17599785 (Version 1)
Quarter: 2020Q1

REPORT INFORMATION
  Report Type: Spontaneous
  Country: GR (occurrence: GR)
  Receive Date: 20200330
  Receipt Date: 20200330
  Transmission Date: 20200409
  Serious: Yes (Other)
  Sender: FDA-Public Use
  Company Number: NVSC2020GR087243

PATIENT

DRUGS (1)
  1. SECUKINUMAB. [Suspect]
     Active Substance: SECUKINUMAB
     Indication: PSORIASIS
     Dosage: 300 MG (AT WEEKS 0, 1, 2, 3, 4 AND EVERY 4 WEEKS)
     Route: 065
     Dates: start: 2015, end: 2019

REACTIONS (1)
  - Basal cell carcinoma [Unknown]
